FAERS Safety Report 11782356 (Version 1)
Quarter: 2015Q4

REPORT INFORMATION
  Report Type: Spontaneous
  Country: JP (occurrence: JP)
  Receive Date: 20151127
  Receipt Date: 20151127
  Transmission Date: 20160305
  Serious: Yes (Other)
  Sender: FDA-Public Use
  Company Number: JP-ROCHE-1634444

PATIENT
  Age: 66 Year
  Sex: Male

DRUGS (4)
  1. PEMETREXED SODIUM HYDRATE [Concomitant]
     Active Substance: PEMETREXED
     Indication: NON-SMALL CELL LUNG CANCER
     Dosage: DOSAGE IS UNCERTAIN.
     Route: 041
     Dates: start: 20150730, end: 20150730
  2. PEMETREXED SODIUM HYDRATE [Concomitant]
     Active Substance: PEMETREXED
     Indication: NON-SMALL CELL LUNG CANCER
     Dosage: ONE DOSE: 80%DOSE, SPLIT NUMBER OF DOSES IS UNKNOWN. DOSING INTERVAL IS UNKNOWN.?2C
     Route: 041
     Dates: start: 20150820, end: 20150820
  3. AVASTIN [Suspect]
     Active Substance: BEVACIZUMAB
     Indication: NON-SMALL CELL LUNG CANCER
     Dosage: 20/AUG/2015 - SECOND CYCLE STARTED
     Route: 041
     Dates: start: 20150730
  4. CISPLATIN. [Concomitant]
     Active Substance: CISPLATIN
     Indication: NON-SMALL CELL LUNG CANCER
     Dosage: ONE DOSE: 75%DOSE, SPLIT NUMBER OF DOSES IS UNKNOWN. DOSING INTERVAL IS UNKNOWN. 20/AUG/2015 - SECON
     Route: 041
     Dates: start: 20150730

REACTIONS (3)
  - Neutropenia [Recovered/Resolved]
  - Pyrexia [Unknown]
  - Thrombosis [Unknown]

NARRATIVE: CASE EVENT DATE: 20150805
